FAERS Safety Report 7077321-X (Version None)
Quarter: 2010Q4

REPORT INFORMATION
  Report Type: 
  Country: None (occurrence: None)
  Receive Date: 20101029
  Receipt Date: 20101029
  Transmission Date: 20110411
  Serious: Yes (Hospitalization)
  Sender: FDA-Public Use
  Company Number: None

PATIENT
  Age: 69 Year
  Sex: Male
  Weight: 74.8435 kg

DRUGS (2)
  1. LEVAQUIN [Suspect]
     Indication: SINUSITIS
     Dosage: 500MG PER DAY FOR 21 DAY PO
     Route: 048
  2. LEVAQUIN [Suspect]
     Indication: SINUSITIS
     Dosage: 750MG PE DAY FOR 9 DAYS PO
     Route: 048

REACTIONS (6)
  - DEHYDRATION [None]
  - DIARRHOEA HAEMORRHAGIC [None]
  - NO THERAPEUTIC RESPONSE [None]
  - PAIN [None]
  - SWELLING [None]
  - WEIGHT DECREASED [None]
